FAERS Safety Report 8517578-9 (Version None)
Quarter: 2012Q3

REPORT INFORMATION
  Report Type: 
  Country: None (occurrence: None)
  Receive Date: 20120718
  Receipt Date: 20120718
  Transmission Date: 20120928
  Serious: Yes (Death)
  Sender: FDA-Public Use
  Company Number: DE-PFIZER INC-2012158199

PATIENT
  Age: 52 Year
  Sex: Female

DRUGS (12)
  1. OLANZAPINE [Interacting]
  2. DOXEPIN [Interacting]
     Indication: MENTAL DISORDER
     Dosage: 25MG, DAILY
  3. DOXEPIN [Interacting]
     Dosage: 125MG, DAILY
  4. PROTHIPENDYL [Interacting]
     Dosage: DOUBLE DOSAGE, AT NIGHT
  5. DIAZEPAM [Suspect]
  6. AMLODIPINE BESYLATE [Interacting]
     Dosage: 7.5MG, UNK
  7. DOXEPIN [Interacting]
     Dosage: 100MG, DAILY
  8. AMLODIPINE BESYLATE [Interacting]
     Dosage: 10MG, UNK
  9. IBUPROFEN [Interacting]
  10. METOPROLOL SUCCINATE [Interacting]
  11. AMLODIPINE BESYLATE [Interacting]
     Dosage: 2.5MG, UNK
  12. TILIDINE [Interacting]

REACTIONS (7)
  - TOXICITY TO VARIOUS AGENTS [None]
  - DRUG INTERACTION [None]
  - INSOMNIA [None]
  - GAIT DISTURBANCE [None]
  - LETHARGY [None]
  - DROOLING [None]
  - PAIN [None]
